FAERS Safety Report 14101195 (Version 1)
Quarter: 2017Q4

REPORT INFORMATION
  Report Type: Spontaneous
  Country: IT (occurrence: IT)
  Receive Date: 20171018
  Receipt Date: 20171018
  Transmission Date: 20180321
  Serious: Yes (Other)
  Sender: FDA-Public Use
  Company Number: IT-BAXTER-2017BAX035591

PATIENT
  Age: 62 Year
  Sex: Female

DRUGS (6)
  1. MESTINON [Concomitant]
     Active Substance: PYRIDOSTIGMINE BROMIDE
     Indication: PRODUCT USED FOR UNKNOWN INDICATION
     Dosage: 60 MG TABLETS, 20 TABLETS
     Route: 065
  2. PERFALGAN [Concomitant]
     Active Substance: ACETAMINOPHEN
     Indication: PRODUCT USED FOR UNKNOWN INDICATION
     Dosage: 12 BOTTLES OF 50 ML
     Route: 042
  3. METRONIDAZOLO BAXTER S.P.A. [Suspect]
     Active Substance: METRONIDAZOLE
     Indication: PNEUMONIA
     Dosage: 0.5 G/100 ML SOLUTION FOR INFUSION 25 BOTTLES OF 100 ML
     Route: 041
     Dates: start: 20170930, end: 20170930
  4. PANTORC [Concomitant]
     Active Substance: PANTOPRAZOLE SODIUM
     Indication: PRODUCT USED FOR UNKNOWN INDICATION
     Dosage: 14 TABLETS GASTRO-RESISTANT 20 MG BLISTER
     Route: 065
  5. AZATIOPRINA HEXAL [Concomitant]
     Active Substance: AZATHIOPRINE
     Indication: PRODUCT USED FOR UNKNOWN INDICATION
     Dosage: 30 FILM COATED TABLETS IN BLISTER OF 50 MG
     Route: 065
  6. LASIX [Concomitant]
     Active Substance: FUROSEMIDE
     Indication: PRODUCT USED FOR UNKNOWN INDICATION
     Dosage: 20 MG/2 ML, 5 AMPOULE OF 2 ML
     Route: 042

REACTIONS (5)
  - Hyperhidrosis [Recovered/Resolved]
  - Nystagmus [Recovered/Resolved]
  - Extrasystoles [Recovered/Resolved]
  - Tachycardia [Recovered/Resolved]
  - Tachypnoea [Recovered/Resolved]

NARRATIVE: CASE EVENT DATE: 20170930
